FAERS Safety Report 12088596 (Version 1)
Quarter: 2016Q1

REPORT INFORMATION
  Report Type: Spontaneous
  Country: CN (occurrence: CN)
  Receive Date: 20160218
  Receipt Date: 20160218
  Transmission Date: 20160526
  Serious: Yes (Other)
  Sender: FDA-Public Use
  Company Number: CN-AXELLIA-000893

PATIENT
  Age: 56 Year
  Sex: Male

DRUGS (5)
  1. LEVOFLOXACIN/LEVOFLOXACIN MESYLATE [Suspect]
     Active Substance: LEVOFLOXACIN
     Indication: KERATITIS BACTERIAL
     Dosage: APPLIED HOURLY
     Route: 061
  2. METRONIDAZOLE. [Suspect]
     Active Substance: METRONIDAZOLE
     Indication: KERATITIS
     Dosage: EVERY 2 HOURS
     Route: 061
  3. TOBRAMYCIN. [Suspect]
     Active Substance: TOBRAMYCIN
     Indication: KERATITIS BACTERIAL
     Dosage: APPLIED HOURLY
     Route: 061
  4. NATAMYCIN [Suspect]
     Active Substance: NATAMYCIN
     Indication: KERATITIS FUNGAL
     Dosage: 4 TIMES PER DAY
     Route: 061
  5. AMIKACIN [Suspect]
     Active Substance: AMIKACIN
     Indication: KERATITIS
     Dosage: EVERY 2 HOURS
     Route: 061

REACTIONS (1)
  - Treatment failure [Unknown]
